FAERS Safety Report 8047401-0 (Version None)
Quarter: 2012Q1

REPORT INFORMATION
  Report Type: 
  Country: None (occurrence: None)
  Receive Date: 20120116
  Receipt Date: 20111230
  Transmission Date: 20120608
  Serious: No
  Sender: FDA-Public Use
  Company Number: FR-TEVA-316950ISR

PATIENT
  Sex: Female

DRUGS (6)
  1. TEGRETOL [Concomitant]
  2. ACTIQ [Suspect]
     Indication: BRACHIAL PLEXUS INJURY
     Dosage: 2400 TO 3000 MICROGRAM
     Route: 048
  3. DURAGESIC-100 [Concomitant]
     Indication: BRACHIAL PLEXUS INJURY
     Dosage: MCG/H
     Route: 062
  4. CLONAZEPAM [Concomitant]
     Indication: PAIN
     Dosage: 20 ;
  5. TOPIRAMATE [Concomitant]
  6. TRAMADOL HCL [Concomitant]

REACTIONS (3)
  - OFF LABEL USE [None]
  - RESPIRATORY DISORDER [None]
  - OVERDOSE [None]
